FAERS Safety Report 26195482 (Version 1)
Quarter: 2025Q4

REPORT INFORMATION
  Report Type: Spontaneous
  Country: AU (occurrence: AU)
  Receive Date: 20251224
  Receipt Date: 20251224
  Transmission Date: 20260117
  Serious: Yes (Other)
  Sender: GE HEALTHCARE
  Company Number: AU-GE HEALTHCARE-2025CSU018230

PATIENT
  Age: 52 Year
  Sex: Female
  Weight: 92 kg

DRUGS (1)
  1. OMNIPAQUE [Suspect]
     Active Substance: IOHEXOL
     Indication: Urogram
     Dosage: 90 ML, TOTAL
     Route: 042
     Dates: start: 20251103

REACTIONS (2)
  - Sneezing [Recovered/Resolved]
  - Paraesthesia oral [Recovered/Resolved]

NARRATIVE: CASE EVENT DATE: 20251103
